FAERS Safety Report 6625213-X (Version None)
Quarter: 2010Q1

REPORT INFORMATION
  Report Type: 
  Country: None (occurrence: None)
  Receive Date: 20100310
  Receipt Date: 20090910
  Transmission Date: 20100710
  Serious: No
  Sender: FDA-Public Use
  Company Number: US-BIOGENIDEC-2009BI028830

PATIENT
  Age: 47 Year
  Sex: Female

DRUGS (2)
  1. AVONEX [Suspect]
     Indication: MULTIPLE SCLEROSIS
     Route: 030
     Dates: start: 19970310, end: 20030101
  2. AVONEX [Suspect]
     Route: 030
     Dates: start: 20030101

REACTIONS (7)
  - ABDOMINAL PAIN UPPER [None]
  - BONE PAIN [None]
  - COCCYDYNIA [None]
  - DRUG HYPERSENSITIVITY [None]
  - NECK PAIN [None]
  - ROAD TRAFFIC ACCIDENT [None]
  - STRESS [None]
